FAERS Safety Report 6819976-8 (Version None)
Quarter: 2010Q2

REPORT INFORMATION
  Report Type: 
  Country: None (occurrence: None)
  Receive Date: 20100630
  Receipt Date: 20100603
  Transmission Date: 20101027
  Serious: Yes (Life-Threatening, Hospitalization)
  Sender: FDA-Public Use
  Company Number: AMAG201000258

PATIENT
  Age: 73 Year
  Sex: Male
  Weight: 64.4 kg

DRUGS (17)
  1. FERAHEME [Suspect]
     Indication: IRON DEFICIENCY ANAEMIA
     Dosage: 510 MG, SINGLE, INTRAVENOUS
     Route: 042
     Dates: start: 20100426, end: 20100426
  2. FERAHEME [Suspect]
     Indication: IRON DEFICIENCY ANAEMIA
     Dosage: 510 MG, SINGLE, INTRAVENOUS
     Route: 042
     Dates: start: 20100521, end: 20100521
  3. ASPIRIN [Concomitant]
  4. CHLORPROMAZINE HCL [Concomitant]
  5. DOCUSATE SODIUM (DOCUSATE SODIUM) [Concomitant]
  6. EPOGEN [Concomitant]
  7. FLONASE [Concomitant]
  8. HYDROCODONE BITARTRATE AND ACETAMINOPHEN (HYDROCODONE BITARTRATE, PARA [Concomitant]
  9. LACTULOSE [Concomitant]
  10. LOVASTATIN [Concomitant]
  11. MEGESTROL ACETATE [Concomitant]
  12. METOCLOPRAMIDE (METOCLOPRAMIDE HYDROCHLORIDE) [Concomitant]
  13. METOPROLOL TARTRATE [Concomitant]
  14. MIDODRINE HYDROCHLORIDE (MIDODRINE HYDROCHLORIDE) [Concomitant]
  15. NITROGLYCERIN [Concomitant]
  16. PLAVIX [Concomitant]
  17. RENVELA [Concomitant]

REACTIONS (12)
  - BACTERAEMIA [None]
  - CARDIOGENIC SHOCK [None]
  - CLOSTRIDIUM DIFFICILE COLITIS [None]
  - DILATATION ATRIAL [None]
  - ELECTROMECHANICAL DISSOCIATION [None]
  - HYPOTENSION [None]
  - LEFT VENTRICULAR HYPERTROPHY [None]
  - PAIN IN EXTREMITY [None]
  - PLEURAL EFFUSION [None]
  - SOMNOLENCE [None]
  - UNRESPONSIVE TO STIMULI [None]
  - VENTRICULAR FIBRILLATION [None]
